FAERS Safety Report 20935576 (Version 2)
Quarter: 2022Q3

REPORT INFORMATION
  Report Type: Report from Study
  Country: US (occurrence: US)
  Receive Date: 20220609
  Receipt Date: 20220809
  Transmission Date: 20221026
  Serious: Yes (Other)
  Sender: FDA-Public Use
  Company Number: US-NOVARTISPH-NVSC2022US128821

PATIENT
  Age: 75 Year
  Sex: Female

DRUGS (1)
  1. ENTRESTO [Suspect]
     Active Substance: SACUBITRIL\VALSARTAN
     Indication: Cardiac failure
     Dosage: 1 DOSAGE FORM
     Route: 065
     Dates: start: 20220112

REACTIONS (4)
  - Cerebrovascular accident [Unknown]
  - Arterial occlusive disease [Unknown]
  - Fall [Recovered/Resolved]
  - Nasal injury [Unknown]

NARRATIVE: CASE EVENT DATE: 20220601
